FAERS Safety Report 7423099-7 (Version None)
Quarter: 2011Q2

REPORT INFORMATION
  Report Type: 
  Country: None (occurrence: None)
  Receive Date: 20110419
  Receipt Date: 20110405
  Transmission Date: 20111010
  Serious: Yes (Death, Hospitalization, Other)
  Sender: FDA-Public Use
  Company Number: IE-CELGENEUS-229-C5013-07100300

PATIENT
  Sex: Male
  Weight: 60.9 kg

DRUGS (22)
  1. LENALIDOMIDE [Suspect]
     Indication: MULTIPLE MYELOMA
     Dosage: 7.5 MILLIGRAM
     Route: 048
     Dates: start: 20070727, end: 20071003
  2. PREDNISONE [Suspect]
     Indication: MULTIPLE MYELOMA
     Dosage: 146 MILLIGRAM
     Route: 065
     Dates: start: 20070823, end: 20070826
  3. MELPHALAN [Suspect]
     Indication: MULTIPLE MYELOMA
     Dosage: 14 MILLIGRAM
     Route: 065
     Dates: start: 20070823, end: 20070826
  4. ENOXAPARIN [Concomitant]
     Indication: ANTICOAGULANT THERAPY
     Dosage: 40 MILLIGRAM
     Route: 058
     Dates: start: 20071004, end: 20071008
  5. PLACEBO FOR CC-5013 [Suspect]
     Indication: MULTIPLE MYELOMA
     Route: 048
  6. LACTULOSE [Concomitant]
     Indication: CONSTIPATION
     Dosage: 20 MILLIGRAM
     Route: 065
     Dates: end: 20071004
  7. BISACODYL [Concomitant]
     Dosage: 5 MILLIGRAM
     Route: 065
     Dates: start: 20071003, end: 20071009
  8. SENOKOT [Concomitant]
     Route: 048
     Dates: end: 20071003
  9. CALCICHEW D3 FORTE [Concomitant]
     Dosage: 2 TABLET
     Route: 048
     Dates: end: 20071009
  10. MELPHALAN [Suspect]
     Dosage: 14 MILLIGRAM
     Route: 065
     Dates: start: 20070919, end: 20070922
  11. ASPIRIN [Concomitant]
     Dosage: 75 MILLIGRAM
     Route: 048
     Dates: end: 20071007
  12. ATORVASTATIN [Concomitant]
     Indication: HYPERCHOLESTEROLAEMIA
     Dosage: 40 MILLIGRAM
     Route: 048
     Dates: end: 20071007
  13. THYROXINE [Concomitant]
     Indication: HYPOTHYROIDISM
     Dosage: 125 MICROGRAM
     Route: 048
     Dates: end: 20071009
  14. SENNA [Concomitant]
     Indication: CONSTIPATION
     Dosage: 2 TABLET
     Route: 048
     Dates: end: 20071003
  15. NORMISON [Concomitant]
     Dosage: 10 MILLIGRAM
     Route: 048
     Dates: start: 20070915
  16. CALCICHEW [Concomitant]
     Dosage: 2 TABLET
     Route: 048
     Dates: end: 20071009
  17. MEGACE [Concomitant]
     Dosage: 20 MILLILITER
     Route: 048
     Dates: end: 20071007
  18. ZOTON [Concomitant]
     Dosage: 30 MILLIGRAM
     Route: 048
     Dates: end: 20071009
  19. PREDNISONE [Suspect]
     Dosage: 146 MILLIGRAM
     Route: 065
     Dates: start: 20070919, end: 20070922
  20. BISACODYL [Concomitant]
     Indication: LAXATIVE SUPPORTIVE CARE
     Dosage: 5 MILLIGRAM
     Route: 048
     Dates: end: 20071003
  21. SLOW-K [Concomitant]
     Route: 048
     Dates: start: 20071003
  22. ELTROXIN [Concomitant]
     Dosage: 125 MICROGRAM
     Dates: end: 20071009

REACTIONS (3)
  - NEUTROPENIA [None]
  - DEPRESSION [None]
  - PNEUMONIA [None]
